FAERS Safety Report 14537496 (Version 1)
Quarter: 2018Q1

REPORT INFORMATION
  Report Type: Spontaneous
  Country: US (occurrence: US)
  Receive Date: 20180215
  Receipt Date: 20180215
  Transmission Date: 20180509
  Serious: Yes (Other)
  Sender: FDA-Public Use
  Company Number: US-BRISTOL-MYERS SQUIBB COMPANY-BMS-2018-012991

PATIENT
  Sex: Male

DRUGS (2)
  1. ELIQUIS [Suspect]
     Active Substance: APIXABAN
     Indication: HEART RATE DECREASED
     Dosage: 2.5 MG, BID
     Route: 065
  2. ELIQUIS [Suspect]
     Active Substance: APIXABAN
     Indication: HYPOTENSION
     Route: 065

REACTIONS (4)
  - Post procedural haemorrhage [Unknown]
  - Anaemia [Unknown]
  - Cardiac disorder [Unknown]
  - Product use in unapproved indication [Unknown]
